FAERS Safety Report 7249958-6 (Version None)
Quarter: 2011Q1

REPORT INFORMATION
  Report Type: 
  Country: None (occurrence: None)
  Receive Date: 20110128
  Receipt Date: 20101103
  Transmission Date: 20110831
  Serious: No
  Sender: FDA-Public Use
  Company Number: A0890553A

PATIENT
  Age: 48 Year
  Sex: Female

DRUGS (2)
  1. VICKS NOSE SPRAY [Concomitant]
  2. WELLBUTRIN [Suspect]
     Dosage: 300MG THREE TIMES PER DAY
     Route: 048

REACTIONS (1)
  - DRUG SCREEN POSITIVE [None]
